FAERS Safety Report 9154320 (Version 1)
Quarter: 2013Q1

REPORT INFORMATION
  Report Type: Spontaneous
  Country: US (occurrence: US)
  Receive Date: 20130311
  Receipt Date: 20130311
  Transmission Date: 20140127
  Serious: Yes (Hospitalization, Other)
  Sender: FDA-Public Use
  Company Number: US-PFIZER INC-2013080531

PATIENT
  Age: 56 Year
  Sex: Female
  Weight: 57.14 kg

DRUGS (1)
  1. LYRICA [Suspect]
     Indication: CONVULSION
     Dosage: 150 MG, 1X/DAY
     Dates: start: 200702, end: 2008

REACTIONS (1)
  - Drug ineffective [Recovered/Resolved]
